FAERS Safety Report 9822027 (Version 2)
Quarter: 2014Q1

REPORT INFORMATION
  Report Type: Spontaneous
  Country: US (occurrence: US)
  Receive Date: 20140116
  Receipt Date: 20140116
  Transmission Date: 20141002
  Serious: Yes (Hospitalization)
  Sender: FDA-Public Use
  Company Number: US-ENDO PHARMACEUTICALS INC.-PERC20130152

PATIENT
  Age: 54 Year
  Sex: Male
  Weight: 74.91 kg

DRUGS (6)
  1. PERCOCET [Suspect]
     Indication: PAIN
     Dosage: UNK
     Route: 065
  2. VIAGRA [Suspect]
     Indication: ERECTILE DYSFUNCTION
     Dosage: UNK
     Route: 048
     Dates: start: 2008
  3. OPIUM [Concomitant]
     Indication: PAIN
     Dosage: UNK
     Route: 065
  4. BUSPAR [Concomitant]
     Indication: ANXIETY
     Route: 065
  5. ATIVAN [Concomitant]
     Indication: ANXIETY
     Route: 065
  6. QUETIAPINE [Concomitant]
     Indication: INSOMNIA
     Route: 065

REACTIONS (1)
  - Accident [Unknown]
